FAERS Safety Report 7436240-7 (Version None)
Quarter: 2011Q2

REPORT INFORMATION
  Report Type: 
  Country: None (occurrence: None)
  Receive Date: 20110425
  Receipt Date: 20110413
  Transmission Date: 20111010
  Serious: Yes (Disabling, Other)
  Sender: FDA-Public Use
  Company Number: US-BAYER-2011-032550

PATIENT
  Age: 69 Year
  Sex: Male

DRUGS (2)
  1. AVELOX [Suspect]
     Indication: SINUSITIS
     Dosage: UNK
     Route: 048
     Dates: start: 20110111
  2. CORTICOSTEROIDS [Suspect]
     Indication: SINUSITIS
     Dosage: UNK
     Dates: start: 20110111

REACTIONS (2)
  - JOINT SWELLING [None]
  - MUSCLE RUPTURE [None]
